FAERS Safety Report 26042748 (Version 1)
Quarter: 2025Q4

REPORT INFORMATION
  Report Type: Spontaneous
  Country: EU (occurrence: EU)
  Receive Date: 20251113
  Receipt Date: 20251113
  Transmission Date: 20260117
  Serious: Yes (Other)
  Sender: ROCHE
  Company Number: EU-ROCHE-10000431774

PATIENT
  Age: 63 Year
  Sex: Female

DRUGS (9)
  1. MYCOPHENOLATE MOFETIL [Suspect]
     Active Substance: MYCOPHENOLATE MOFETIL
     Indication: Ocular pemphigoid
     Route: 048
  2. METHYLPREDNISOLONE [Suspect]
     Active Substance: METHYLPREDNISOLONE
     Indication: Ocular pemphigoid
     Route: 048
  3. CYCLOPHOSPHAMIDE [Suspect]
     Active Substance: CYCLOPHOSPHAMIDE
     Indication: Ocular pemphigoid
     Dosage: FOR 6 MONTHS
     Route: 042
  4. DEXAMETHASONE [Suspect]
     Active Substance: DEXAMETHASONE
     Indication: Ocular pemphigoid
     Route: 065
  5. ACETAZOLAMIDE [Concomitant]
     Active Substance: ACETAZOLAMIDE
     Route: 048
  6. BRIMONIDINE [Concomitant]
     Active Substance: BRIMONIDINE TARTRATE
  7. LATANOPROST [Concomitant]
     Active Substance: LATANOPROST
  8. DORZOLAMIDE [Concomitant]
     Active Substance: DORZOLAMIDE
  9. TIMOLOL [Concomitant]
     Active Substance: TIMOLOL

REACTIONS (3)
  - Off label use [Unknown]
  - Cataract [Unknown]
  - Intraocular pressure increased [Unknown]
